FAERS Safety Report 8101052 (Version 7)
Quarter: 2014Q4

REPORT INFORMATION
  Report Type: Spontaneous
  Country: US (occurrence: US)
  Receive Date: 20110822
  Receipt Date: 20141205
  Transmission Date: 20150529
  Serious: Yes (Hospitalization, Other)
  Sender: FDA-Public Use
  Company Number: US-BRISTOL-MYERS SQUIBB COMPANY-15979313

PATIENT
  Age: 52 Year
  Sex: Female
  Weight: 90.7 kg

DRUGS (2)
  1. ABILIFY [Suspect]
     Active Substance: ARIPIPRAZOLE
     Indication: BIPOLAR DISORDER
     Dosage: 5MG,THERAPY ON 08JUL11,15MG 30 DAYS
     Route: 048
     Dates: start: 2007
  2. ABILIFY [Suspect]
     Active Substance: ARIPIPRAZOLE
     Indication: DEPRESSION
     Dosage: 5MG,THERAPY ON 08JUL11,15MG 30 DAYS
     Route: 048
     Dates: start: 2007

REACTIONS (21)
  - Neuroleptic malignant syndrome [Unknown]
  - Pyrexia [Unknown]
  - Mass [Unknown]
  - Malaise [Unknown]
  - Type 2 diabetes mellitus [Unknown]
  - Hypoaesthesia [Unknown]
  - Activities of daily living impaired [Unknown]
  - Feeling hot [Unknown]
  - Visual acuity reduced [Unknown]
  - Cardiac flutter [Unknown]
  - Hypersensitivity [Unknown]
  - Vomiting [Unknown]
  - Nausea [Unknown]
  - Insomnia [Unknown]
  - Diarrhoea [Unknown]
  - Chills [Unknown]
  - Asthenia [Unknown]
  - Malaise [Unknown]
  - Weight increased [Unknown]
  - Increased appetite [Unknown]
  - Fatigue [Unknown]

NARRATIVE: CASE EVENT DATE: 20110608
